FAERS Safety Report 5148745-2 (Version None)
Quarter: 2006Q4

REPORT INFORMATION
  Report Type: 
  Country: None (occurrence: None)
  Receive Date: 20061107
  Receipt Date: 20061023
  Transmission Date: 20070319
  Serious: Yes (Hospitalization)
  Sender: FDA-Public Use
  Company Number: 2006BI014710

PATIENT
  Age: 45 Year
  Sex: Female

DRUGS (2)
  1. AVONEX [Suspect]
     Indication: MULTIPLE SCLEROSIS
     Dosage: 30 UG QW IM
     Route: 030
     Dates: start: 19980101, end: 20060818
  2. AVONEX [Suspect]
     Indication: MULTIPLE SCLEROSIS
     Dosage: 30 UG QW
     Dates: start: 20060918

REACTIONS (6)
  - ALCOHOLISM [None]
  - CONDITION AGGRAVATED [None]
  - DRUG ABUSER [None]
  - DYSPHAGIA [None]
  - MULTIPLE SCLEROSIS [None]
  - URINARY TRACT INFECTION [None]
